FAERS Safety Report 7410249 (Version 7)
Quarter: 2013Q4

REPORT INFORMATION
  Report Type: Report from Study
  Country: JP (occurrence: JP)
  Receive Date: 20100604
  Receipt Date: 20131022
  Transmission Date: 20140711
  Serious: Yes (Death, Other)
  Sender: FDA-Public Use
  Company Number: PHHY2010JP34765

PATIENT
  Age: 69 Year
  Sex: Male
  Weight: 60 kg

DRUGS (14)
  1. ICL670A [Suspect]
     Indication: APLASIA PURE RED CELL
     Dosage: 1000 MG, DAILY
     Route: 048
     Dates: start: 20090325, end: 20090330
  2. ICL670A [Suspect]
     Indication: IRON OVERLOAD
     Dosage: 1000 MG, DAILY
     Route: 048
     Dates: start: 20090507, end: 20090511
  3. ICL670A [Suspect]
     Dosage: 500 MG, DAILY
     Route: 048
     Dates: start: 20090606, end: 20090607
  4. ICL670A [Suspect]
     Dosage: 500 MG, DAILY
     Route: 048
     Dates: start: 20090619, end: 20090718
  5. NEORAL [Suspect]
     Indication: APLASIA PURE RED CELL
     Dosage: 200 MG, DAILY
     Route: 048
     Dates: start: 20030222
  6. PREDONINE [Suspect]
     Indication: APLASIA PURE RED CELL
     Route: 048
     Dates: start: 20070627, end: 20090828
  7. PREDONINE [Suspect]
     Dosage: UNK UKN, UNK
     Route: 048
     Dates: start: 20090829
  8. DIOVAN [Concomitant]
     Dosage: 160 MG, UNK
     Route: 048
     Dates: start: 200812
  9. CALCIUM LACTATE [Concomitant]
     Indication: PROPHYLAXIS
     Route: 048
     Dates: start: 20070627
  10. MUCOSTA [Concomitant]
     Indication: PROPHYLAXIS
     Dosage: 300 MG, UNK
     Route: 048
     Dates: start: 20070710
  11. NORVASC [Concomitant]
     Dosage: 5 MG, UNK
     Route: 048
     Dates: start: 200812
  12. CIPROXAN [Concomitant]
     Indication: PROPHYLAXIS
     Dosage: 600 MG, UNK
     Route: 048
     Dates: start: 20090328, end: 20090331
  13. RED CELLS MAP [Concomitant]
     Dosage: 2 U, EVERY 2 WEEKS
     Dates: start: 20021228, end: 20030301
  14. RED CELLS MAP [Concomitant]
     Dosage: 2 UNITS EVERY 2 WEEKS
     Dates: start: 20080419

REACTIONS (12)
  - Disseminated tuberculosis [Fatal]
  - C-reactive protein increased [Fatal]
  - Serum ferritin increased [Unknown]
  - Duodenal ulcer [Recovered/Resolved]
  - Gastritis [Recovered/Resolved]
  - Pharyngitis [Recovered/Resolved]
  - Viral infection [Recovered/Resolved]
  - Alanine aminotransferase increased [Recovering/Resolving]
  - Aspartate aminotransferase increased [Recovered/Resolved]
  - Decreased appetite [Recovered/Resolved]
  - Diarrhoea [Recovered/Resolved]
  - Nausea [Recovered/Resolved]
